FAERS Safety Report 4884202-6 (Version None)
Quarter: 2005Q4

REPORT INFORMATION
  Report Type: 
  Country: None (occurrence: None)
  Receive Date: 20051201
  Receipt Date: 20050909
  Transmission Date: 20060501
  Serious: No
  Sender: FDA-Public Use
  Company Number: 2005PV001963

PATIENT
  Age: 78 Year
  Sex: Male
  Weight: 81.1939 kg

DRUGS (12)
  1. BYETTA [Suspect]
     Indication: DIABETES MELLITUS NON-INSULIN-DEPENDENT
     Dosage: SEE IMAGE
     Route: 058
     Dates: start: 20050823, end: 20050830
  2. BYETTA [Suspect]
     Indication: DIABETES MELLITUS NON-INSULIN-DEPENDENT
     Dosage: SEE IMAGE
     Route: 058
     Dates: start: 20050830
  3. GLIPIZIDE [Concomitant]
  4. METFORMIN [Concomitant]
  5. NIASPAN [Concomitant]
  6. ACTAMINOPHEN [Concomitant]
  7. LIPITOR [Concomitant]
  8. ASPIRIN [Concomitant]
  9. PLAVIX [Concomitant]
  10. ZANAFLEX [Concomitant]
  11. COZAAR [Concomitant]
  12. ATENOLOL [Concomitant]

REACTIONS (1)
  - BLOOD GLUCOSE INCREASED [None]
